FAERS Safety Report 8999125 (Version 1)
Quarter: 2013Q1

REPORT INFORMATION
  Report Type: Spontaneous
  Country: US (occurrence: US)
  Receive Date: 20130103
  Receipt Date: 20130103
  Transmission Date: 20140127
  Serious: Yes (Hospitalization, Other)
  Sender: FDA-Public Use
  Company Number: US-ELI_LILLY_AND_COMPANY-US201212007927

PATIENT
  Age: 74 Year
  Sex: Female

DRUGS (4)
  1. HUMULIN 30% REGULAR, 70% NPH [Suspect]
     Indication: TYPE 2 DIABETES MELLITUS
     Dosage: UNK UNK, PRN
     Dates: start: 1994
  2. HUMULIN 30% REGULAR, 70% NPH [Suspect]
     Dosage: UNK UNK, PRN
     Dates: start: 2008
  3. HUMALOG 25% LISPRO, 75% NPL [Suspect]
     Indication: TYPE 2 DIABETES MELLITUS
     Dosage: 30 U, PRN
  4. PROZAC [Concomitant]

REACTIONS (7)
  - Renal impairment [Unknown]
  - Brain abscess [Unknown]
  - Memory impairment [Not Recovered/Not Resolved]
  - Visual acuity reduced [Unknown]
  - Cataract [Not Recovered/Not Resolved]
  - Confusional state [Not Recovered/Not Resolved]
  - Headache [Recovered/Resolved]
